FAERS Safety Report 20265429 (Version 1)
Quarter: 2021Q4

REPORT INFORMATION
  Report Type: Spontaneous
  Country: CN (occurrence: CN)
  Receive Date: 20211231
  Receipt Date: 20211231
  Transmission Date: 20220304
  Serious: Yes (Other)
  Sender: FDA-Public Use
  Company Number: CN-009507513-2112CHN009526

PATIENT
  Age: 56 Year
  Sex: Male

DRUGS (4)
  1. CILASTATIN SODIUM\IMIPENEM [Suspect]
     Active Substance: CILASTATIN SODIUM\IMIPENEM
     Indication: Pneumonia
     Dosage: 1 G, QID
     Route: 041
     Dates: start: 20211119, end: 20211202
  2. PIPERACILLIN SODIUM\TAZOBACTAM SODIUM [Concomitant]
     Active Substance: PIPERACILLIN SODIUM\TAZOBACTAM SODIUM
  3. AMIKACIN [Concomitant]
     Active Substance: AMIKACIN
  4. CEFTAZIDIME [Concomitant]
     Active Substance: CEFTAZIDIME

REACTIONS (3)
  - Delirium [Recovering/Resolving]
  - Dysphoria [Recovering/Resolving]
  - Drug ineffective [Unknown]

NARRATIVE: CASE EVENT DATE: 20211123
